FAERS Safety Report 8477477-8 (Version None)
Quarter: 2012Q2

REPORT INFORMATION
  Report Type: 
  Country: None (occurrence: None)
  Receive Date: 20120629
  Receipt Date: 20120626
  Transmission Date: 20120825
  Serious: Yes (Hospitalization, Other)
  Sender: FDA-Public Use
  Company Number: PHHY2012US055288

PATIENT
  Sex: Male
  Weight: 73.469 kg

DRUGS (8)
  1. DECITABINE [Concomitant]
     Indication: MYELODYSPLASTIC SYNDROME
  2. KETOROLAC TROMETHAMINE [Concomitant]
  3. NORVASC [Concomitant]
     Indication: HYPERTENSION
  4. LOTENSIN [Concomitant]
     Indication: HYPERTENSION
  5. EXJADE [Suspect]
     Dosage: 1000 MG, UNK
  6. RAZADYNE [Concomitant]
     Indication: DEMENTIA ALZHEIMER'S TYPE
  7. EXJADE [Suspect]
     Indication: MYELODYSPLASTIC SYNDROME
     Dosage: 1000 MG, UNK
     Dates: start: 20080708, end: 20120117
  8. FINASTERIDE [Concomitant]
     Indication: BENIGN PROSTATIC HYPERPLASIA

REACTIONS (7)
  - DYSPNOEA [None]
  - CHEST PAIN [None]
  - CHOLELITHIASIS [None]
  - PULMONARY EMBOLISM [None]
  - ABDOMINAL PAIN [None]
  - SPLENOMEGALY [None]
  - FEBRILE NEUTROPENIA [None]
